FAERS Safety Report 6390222-5 (Version None)
Quarter: 2009Q4

REPORT INFORMATION
  Report Type: 
  Country: None (occurrence: None)
  Receive Date: 20091006
  Receipt Date: 20091001
  Transmission Date: 20100525
  Serious: Yes (Other)
  Sender: FDA-Public Use
  Company Number: A0810421A

PATIENT
  Age: 49 Year
  Sex: Female

DRUGS (2)
  1. TYKERB [Suspect]
     Dosage: 1250MG PER DAY
     Dates: start: 20090301
  2. CAPECITABINE [Suspect]
     Dosage: 2000MGM2 UNKNOWN
     Dates: start: 20090301

REACTIONS (6)
  - DECREASED APPETITE [None]
  - DIARRHOEA [None]
  - LEUKOPENIA [None]
  - PALMAR-PLANTAR ERYTHRODYSAESTHESIA SYNDROME [None]
  - RASH [None]
  - XERODERMA [None]
